FAERS Safety Report 10774891 (Version 1)
Quarter: 2015Q1

REPORT INFORMATION
  Report Type: Spontaneous
  Country: US (occurrence: US)
  Receive Date: 20150209
  Receipt Date: 20150209
  Transmission Date: 20150721
  Serious: Yes (Other)
  Sender: FDA-Public Use
  Company Number: US-ORION CORPORATION ORION PHARMA-ENT 2015-0014

PATIENT
  Sex: Female

DRUGS (1)
  1. ENTACAPONE TABLETS [Suspect]
     Active Substance: ENTACAPONE
     Route: 065

REACTIONS (1)
  - Dysphagia [Recovered/Resolved]
